FAERS Safety Report 15952190 (Version 2)
Quarter: 2019Q2

REPORT INFORMATION
  Report Type: Spontaneous
  Country: US (occurrence: US)
  Receive Date: 20190212
  Receipt Date: 20190402
  Transmission Date: 20190711
  Serious: No
  Sender: FDA-Public Use
  Company Number: US-PFIZER INC-2019056319

PATIENT
  Age: 68 Year
  Sex: Female
  Weight: 89 kg

DRUGS (2)
  1. TRACLEER [Concomitant]
     Active Substance: BOSENTAN
     Dosage: UNK
  2. REVATIO [Suspect]
     Active Substance: SILDENAFIL CITRATE
     Dosage: 20 MG, 1 TABLET (DF), 3X/DAY
     Route: 048
     Dates: start: 20180622

REACTIONS (5)
  - Dyspnoea [Unknown]
  - Cough [Unknown]
  - Peripheral swelling [Unknown]
  - Oedema peripheral [Unknown]
  - Dysphagia [Unknown]
